FAERS Safety Report 19407522 (Version 2)
Quarter: 2021Q2

REPORT INFORMATION
  Report Type: Spontaneous
  Country: US (occurrence: US)
  Receive Date: 20210611
  Receipt Date: 20210615
  Transmission Date: 20210717
  Serious: Yes (Hospitalization, Other)
  Sender: FDA-Public Use
  Company Number: US-ROCHE-2844086

PATIENT
  Age: 61 Year
  Sex: Female
  Weight: 57.7 kg

DRUGS (9)
  1. XANAX [Concomitant]
     Active Substance: ALPRAZOLAM
     Indication: ANXIETY
  2. TREPROSTINIL. [Suspect]
     Active Substance: TREPROSTINIL
     Route: 048
  3. MACITENTAN [Suspect]
     Active Substance: MACITENTAN
     Indication: PULMONARY ARTERIAL HYPERTENSION
     Route: 048
  4. CELLCEPT [Suspect]
     Active Substance: MYCOPHENOLATE MOFETIL\MYCOPHENOLATE MOFETIL HYDROCHLORIDE
     Indication: PRODUCT USED FOR UNKNOWN INDICATION
     Route: 048
  5. ORENITRAM [Suspect]
     Active Substance: TREPROSTINIL
     Indication: PULMONARY ARTERIAL HYPERTENSION
     Route: 048
  6. OPSUMIT [Concomitant]
     Active Substance: MACITENTAN
  7. SILDENAFIL CITRATE. [Concomitant]
     Active Substance: SILDENAFIL CITRATE
  8. TREPROSTINIL. [Suspect]
     Active Substance: TREPROSTINIL
     Route: 048
  9. TREPROSTINIL. [Suspect]
     Active Substance: TREPROSTINIL
     Indication: PULMONARY ARTERIAL HYPERTENSION
     Route: 048
     Dates: start: 20210128

REACTIONS (16)
  - Drug ineffective [Unknown]
  - Oxygen saturation decreased [Unknown]
  - Gastric disorder [Unknown]
  - Peripheral swelling [Unknown]
  - Scleroderma [Unknown]
  - Dyspnoea [Unknown]
  - Anxiety [Not Recovered/Not Resolved]
  - Stress [Not Recovered/Not Resolved]
  - Flushing [Unknown]
  - Odynophagia [Unknown]
  - Fatigue [Unknown]
  - Nightmare [Unknown]
  - Melaena [Unknown]
  - Coma [Unknown]
  - Panic attack [Unknown]
  - Headache [Unknown]

NARRATIVE: CASE EVENT DATE: 20210412
